FAERS Safety Report 8338605-8 (Version None)
Quarter: 2012Q2

REPORT INFORMATION
  Report Type: 
  Country: None (occurrence: None)
  Receive Date: 20120504
  Receipt Date: 20120417
  Transmission Date: 20120825
  Serious: Yes (Hospitalization)
  Sender: FDA-Public Use
  Company Number: US-BAXTER-2012BAX000990

PATIENT
  Sex: Male

DRUGS (1)
  1. DIANEAL [Suspect]
     Route: 033
     Dates: start: 20111201

REACTIONS (1)
  - HAEMATOCHEZIA [None]
